FAERS Safety Report 24220262 (Version 1)
Quarter: 2024Q3

REPORT INFORMATION
  Report Type: Spontaneous
  Country: SE (occurrence: SE)
  Receive Date: 20240817
  Receipt Date: 20240817
  Transmission Date: 20241016
  Serious: Yes (Other)
  Sender: TEVA
  Company Number: None

PATIENT
  Age: 77 Year
  Sex: Female

DRUGS (2)
  1. EZETIMIBE [Suspect]
     Active Substance: EZETIMIBE
     Indication: Blood cholesterol increased
     Route: 065
     Dates: start: 20210819, end: 20211211
  2. CANDESARTAN [Concomitant]
     Active Substance: CANDESARTAN
     Indication: Product used for unknown indication
     Route: 065

REACTIONS (7)
  - Movement disorder [Recovering/Resolving]
  - Pain [Recovering/Resolving]
  - Polymyalgia rheumatica [Recovering/Resolving]
  - Musculoskeletal stiffness [Recovering/Resolving]
  - Hypertension [Unknown]
  - Sleep disorder [Unknown]
  - Paraesthesia [Unknown]

NARRATIVE: CASE EVENT DATE: 20210101
